FAERS Safety Report 8525703-9 (Version None)
Quarter: 2012Q3

REPORT INFORMATION
  Report Type: 
  Country: None (occurrence: None)
  Receive Date: 20120720
  Receipt Date: 20120717
  Transmission Date: 20120928
  Serious: Yes (Death)
  Sender: FDA-Public Use
  Company Number: US-CELGENEUS-163-21880-12063330

PATIENT
  Sex: Male
  Weight: 75.818 kg

DRUGS (8)
  1. REVLIMID [Suspect]
     Dosage: 50 MILLIGRAM
     Route: 048
     Dates: start: 20110608, end: 20110706
  2. SENNA CONCENTRATE [Concomitant]
     Route: 048
  3. FINASTERIDE [Concomitant]
     Dosage: .5 MILLIGRAM
     Route: 048
  4. HYDROCHLOROTHIAZIDE [Concomitant]
     Dosage: 25 MILLIGRAM
     Route: 048
  5. ATENOLOL [Concomitant]
     Dosage: 50 MILLIGRAM
     Route: 048
  6. OCUVITE EXTRA [Concomitant]
     Route: 048
  7. LEVAQUIN [Concomitant]
     Dosage: 250 MILLIGRAM
     Route: 048
  8. M.V.I. [Concomitant]
     Route: 048

REACTIONS (2)
  - ACUTE MYELOID LEUKAEMIA [None]
  - DISEASE PROGRESSION [None]
